FAERS Safety Report 15461105 (Version 2)
Quarter: 2018Q4

REPORT INFORMATION
  Report Type: Report from Study
  Country: JP (occurrence: JP)
  Receive Date: 20181003
  Receipt Date: 20181219
  Transmission Date: 20190204
  Serious: Yes (Disabling)
  Sender: FDA-Public Use
  Company Number: JP-ASTRAZENECA-2018SF27799

PATIENT
  Age: 82 Year
  Sex: Female
  Weight: 39 kg

DRUGS (1)
  1. LYNPARZA [Suspect]
     Active Substance: OLAPARIB
     Indication: OVARIAN CANCER
     Route: 048
     Dates: start: 20180515, end: 20180625

REACTIONS (3)
  - Anaemia [Recovered/Resolved]
  - Interstitial lung disease [Recovered/Resolved with Sequelae]
  - Nausea [Recovered/Resolved]

NARRATIVE: CASE EVENT DATE: 20180520
